FAERS Safety Report 4851786-3 (Version None)
Quarter: 2005Q4

REPORT INFORMATION
  Report Type: 
  Country: None (occurrence: None)
  Receive Date: 20051209
  Receipt Date: 20051209
  Transmission Date: 20060501
  Serious: Yes (Other)
  Sender: FDA-Public Use
  Company Number: None

PATIENT
  Age: 56 Year
  Sex: Male
  Weight: 122.4712 kg

DRUGS (2)
  1. DEMEROL 50 MG FROM MED SELECT [Suspect]
     Indication: PAIN MANAGEMENT
     Dates: start: 20050726
  2. BENADRYL [Suspect]

REACTIONS (1)
  - DRUG HYPERSENSITIVITY [None]
